FAERS Safety Report 5316773-X (Version None)
Quarter: 2007Q2

REPORT INFORMATION
  Report Type: 
  Country: None (occurrence: None)
  Receive Date: 20070501
  Receipt Date: 20070501
  Transmission Date: 20071010
  Serious: Yes (Hospitalization)
  Sender: FDA-Public Use
  Company Number: None

PATIENT
  Age: 64 Year
  Sex: Male

DRUGS (2)
  1. AMIODARONE HCL [Suspect]
     Indication: ATRIAL FIBRILLATION
     Dosage: 400MG TID PO
     Route: 048
     Dates: start: 20070302, end: 20070312
  2. METOPROLOL SUCCINATE [Suspect]
     Indication: ATRIAL FIBRILLATION
     Dosage: 50MG BID PO
     Route: 048
     Dates: start: 20070302, end: 20070312

REACTIONS (8)
  - ATRIAL FIBRILLATION [None]
  - BRADYCARDIA [None]
  - DIZZINESS [None]
  - ELECTROCARDIOGRAM QT PROLONGED [None]
  - ELECTROCARDIOGRAM ST SEGMENT ABNORMAL [None]
  - HYPOTENSION [None]
  - URINE OUTPUT DECREASED [None]
  - VENTRICULAR TACHYCARDIA [None]
